FAERS Safety Report 6419875-X (Version None)
Quarter: 2009Q4

REPORT INFORMATION
  Report Type: 
  Country: None (occurrence: None)
  Receive Date: 20091029
  Receipt Date: 20091020
  Transmission Date: 20100525
  Serious: Yes (Other)
  Sender: FDA-Public Use
  Company Number: NL-MERCK-0910NLD00022

PATIENT
  Age: 69 Year
  Sex: Male

DRUGS (9)
  1. COZAAR [Suspect]
     Indication: HYPERTENSION
     Route: 048
     Dates: start: 20010115, end: 20031217
  2. COZAAR [Suspect]
     Route: 048
     Dates: start: 20031218
  3. FLUTICASONE PROPIONATE AND SALMETEROL XINAFOATE [Concomitant]
     Dates: start: 20090217
  4. INSULIN ASPART, BIPHASIC ISOPHANE [INJECTION] [Concomitant]
     Route: 058
     Dates: start: 20050217
  5. ESOMEPRAZOLE MAGNESIUM [Concomitant]
     Route: 048
     Dates: start: 20090414
  6. DILTIAZEM HYDROCHLORIDE [Concomitant]
     Route: 048
     Dates: start: 20080424
  7. ALBUTEROL [Concomitant]
     Dates: start: 20010404
  8. HYDROCHLOROTHIAZIDE [Concomitant]
     Route: 048
     Dates: start: 20050504
  9. FLUTICASONE PROPIONATE [Concomitant]
     Dates: start: 20060306

REACTIONS (1)
  - MACULAR DEGENERATION [None]
